FAERS Safety Report 11619141 (Version 1)
Quarter: 2015Q4

REPORT INFORMATION
  Report Type: Spontaneous
  Country: FR (occurrence: FR)
  Receive Date: 20151012
  Receipt Date: 20151012
  Transmission Date: 20160304
  Serious: Yes (Death)
  Sender: FDA-Public Use
  Company Number: FR-NOVOPROD-466078

PATIENT
  Age: 85 Year
  Sex: Male
  Weight: 95 kg

DRUGS (13)
  1. CORTANCYL [Concomitant]
     Active Substance: PREDNISONE
  2. RAMIPRIL. [Concomitant]
     Active Substance: RAMIPRIL
  3. PRAVASTATIN [Concomitant]
     Active Substance: PRAVASTATIN\PRAVASTATIN SODIUM
  4. DECAPEPTYL [Concomitant]
     Active Substance: TRIPTORELIN ACETATE
  5. CLOTIAZEPAM [Concomitant]
     Active Substance: CLOTIAZEPAM
  6. CLAFORAN [Concomitant]
     Active Substance: CEFOTAXIME SODIUM
  7. ARANESP [Concomitant]
     Active Substance: DARBEPOETIN ALFA
  8. PANTOPRAZOLE [Concomitant]
     Active Substance: PANTOPRAZOLE SODIUM
  9. NOVOSEVEN [Suspect]
     Active Substance: COAGULATION FACTOR VIIA RECOMBINANT HUMAN
     Indication: FACTOR VIII DEFICIENCY
     Dosage: UNKNOWN (SINGLE)
     Route: 042
     Dates: start: 20150719, end: 20150719
  10. FUROSEMIDE. [Concomitant]
     Active Substance: FUROSEMIDE
  11. MEBEVERINE [Concomitant]
     Active Substance: MEBEVERINE
  12. ATENOLOL. [Concomitant]
     Active Substance: ATENOLOL
  13. LOXEN                              /00639802/ [Concomitant]
     Active Substance: NICARDIPINE

REACTIONS (1)
  - Myocardial infarction [Fatal]

NARRATIVE: CASE EVENT DATE: 20150719
